FAERS Safety Report 4432254-X (Version None)
Quarter: 2004Q3

REPORT INFORMATION
  Report Type: 
  Country: None (occurrence: None)
  Receive Date: 20040820
  Receipt Date: 20040810
  Transmission Date: 20050211
  Serious: Yes (Hospitalization)
  Sender: FDA-Public Use
  Company Number: S04-FRA-02773-01

PATIENT
  Age: 84 Year
  Sex: Female

DRUGS (3)
  1. MEMANTINE HCL [Suspect]
     Indication: COGNITIVE DISORDER
     Dosage: 50 MG QD PO
     Route: 048
     Dates: start: 20040520, end: 20040526
  2. MEMANTINE HCL [Suspect]
     Indication: COGNITIVE DISORDER
     Dates: start: 20040401, end: 20040501
  3. CITALOPRAM HYDROBROMIDE [Suspect]
     Indication: COGNITIVE DISORDER
     Dosage: 20 MG QD PO
     Route: 048

REACTIONS (5)
  - BLOOD GLUCOSE INCREASED [None]
  - CEREBRAL ISCHAEMIA [None]
  - GASTROINTESTINAL HAEMORRHAGE [None]
  - HAEMATOMA [None]
  - THROMBOCYTOPENIA [None]
